FAERS Safety Report 17351987 (Version 1)
Quarter: 2020Q1

REPORT INFORMATION
  Report Type: Spontaneous
  Country: US (occurrence: US)
  Receive Date: 20200130
  Receipt Date: 20200130
  Transmission Date: 20200409
  Serious: No
  Sender: FDA-Public Use
  Company Number: US-AMNEAL PHARMACEUTICALS-2019AMN00464

PATIENT

DRUGS (1)
  1. NAPROXEN. [Suspect]
     Active Substance: NAPROXEN
     Indication: MENISCUS INJURY
     Dosage: 2 TABLETS, 1X/DAY (IN CRUSHED FORM)
     Route: 048

REACTIONS (3)
  - Rash pruritic [Recovering/Resolving]
  - Peripheral swelling [Recovering/Resolving]
  - Muscle rigidity [Recovered/Resolved]
